FAERS Safety Report 4503013-4 (Version None)
Quarter: 2004Q4

REPORT INFORMATION
  Report Type: 
  Country: None (occurrence: None)
  Receive Date: 20041112
  Receipt Date: 20041102
  Transmission Date: 20050328
  Serious: Yes (Hospitalization)
  Sender: FDA-Public Use
  Company Number: 2004-11-0091

PATIENT
  Sex: Male

DRUGS (2)
  1. TEMODAL [Suspect]
     Indication: LYMPHOMA
     Dosage: 180 M G QD
     Dates: start: 20041025, end: 20041030
  2. METHOTREXATE [Suspect]
     Indication: LYMPHOMA
     Dosage: 5.4 MG QD
     Dates: start: 20041027

REACTIONS (4)
  - DIARRHOEA [None]
  - NEUTROPENIA [None]
  - RENAL FAILURE [None]
  - THROMBOCYTOPENIA [None]
